FAERS Safety Report 7113555-3 (Version None)
Quarter: 2010Q4

REPORT INFORMATION
  Report Type: 
  Country: None (occurrence: None)
  Receive Date: 20101119
  Receipt Date: 20101116
  Transmission Date: 20110411
  Serious: No
  Sender: FDA-Public Use
  Company Number: US-PFIZER INC-2010149933

PATIENT
  Sex: Female
  Weight: 59 kg

DRUGS (1)
  1. SPIRONOLACTONE + HYDROCHLOROTHIAZIDE [Suspect]
     Indication: OEDEMA
     Dosage: 25/25 MG, DAILY
     Route: 048
     Dates: start: 20100501, end: 20100501

REACTIONS (1)
  - RASH [None]
